FAERS Safety Report 8184959-5 (Version None)
Quarter: 2012Q1

REPORT INFORMATION
  Report Type: 
  Country: None (occurrence: None)
  Receive Date: 20120305
  Receipt Date: 20120229
  Transmission Date: 20120608
  Serious: Yes (Other)
  Sender: FDA-Public Use
  Company Number: GB-VIIV HEALTHCARE LIMITED-B0783672A

PATIENT
  Sex: Female

DRUGS (3)
  1. ABACAVIR SULFATE/LAMIVUDINE [Suspect]
     Indication: HIV INFECTION
     Dosage: 1TAB PER DAY
     Route: 048
  2. EYE DROPS [Concomitant]
     Indication: GLAUCOMA
  3. NEVIRAPINE [Suspect]
     Indication: HIV INFECTION
     Route: 065

REACTIONS (1)
  - COLOUR BLINDNESS [None]
